FAERS Safety Report 11878356 (Version 1)
Quarter: 2015Q4

REPORT INFORMATION
  Report Type: Spontaneous
  Country: CZ (occurrence: CZ)
  Receive Date: 20151230
  Receipt Date: 20151230
  Transmission Date: 20160305
  Serious: Yes (Other)
  Sender: FDA-Public Use
  Company Number: CZ-WATSON-2015-15564

PATIENT
  Age: 49 Year
  Sex: Female

DRUGS (6)
  1. CARDILAN                           /00152401/ [Concomitant]
     Indication: CARDIAC FAILURE
     Dosage: UNK
     Route: 065
  2. MAGNESIUM SULPHATE                 /07507001/ [Concomitant]
     Active Substance: MAGNESIUM SULFATE
     Indication: CARDIAC FAILURE
     Dosage: UNK
     Route: 065
  3. TAMOXIFEN (UNKNOWN) [Suspect]
     Active Substance: TAMOXIFEN
     Indication: BREAST CANCER
     Dosage: 20 MG, DAILY, IN THE MORNING
     Route: 065
     Dates: start: 2012, end: 20131007
  4. FURON                              /00032601/ [Concomitant]
     Active Substance: FUROSEMIDE
     Indication: CARDIAC FAILURE
     Dosage: 40 MG, BID
     Route: 065
  5. FURON                              /00032601/ [Concomitant]
     Active Substance: FUROSEMIDE
     Dosage: 40 MG, DAILY
     Route: 065
  6. POTASSIUM CHLORATE [Concomitant]
     Active Substance: POTASSIUM CHLORATE
     Indication: CARDIAC FAILURE
     Dosage: UNK
     Route: 065

REACTIONS (1)
  - Gastrointestinal toxicity [Unknown]
